FAERS Safety Report 4450305-3 (Version None)
Quarter: 2004Q3

REPORT INFORMATION
  Report Type: 
  Country: None (occurrence: None)
  Receive Date: 20040914
  Receipt Date: 20040831
  Transmission Date: 20050211
  Serious: No
  Sender: FDA-Public Use
  Company Number: 04P-167-0272341-00

PATIENT
  Age: 56 Year
  Sex: Male

DRUGS (2)
  1. BIAXIN [Suspect]
     Indication: RHINITIS
     Dosage: 500 MG, 2 IN 1 D
     Dates: start: 20030301, end: 20030413
  2. SIMVASTATIN [Suspect]
     Indication: BLOOD CHOLESTEROL INCREASED
     Dosage: 40 MG, 1 IN 1 D, PER ORAL
     Route: 048
     Dates: start: 20021001, end: 20040414

REACTIONS (4)
  - BACK PAIN [None]
  - DIARRHOEA [None]
  - DRUG INTERACTION [None]
  - RHABDOMYOLYSIS [None]
